FAERS Safety Report 26137945 (Version 2)
Quarter: 2025Q4

REPORT INFORMATION
  Report Type: Spontaneous
  Country: EU (occurrence: EU)
  Receive Date: 20251210
  Receipt Date: 20251211
  Transmission Date: 20260117
  Serious: Yes (Hospitalization, Other)
  Sender: ABBVIE
  Company Number: None

PATIENT
  Age: 72 Year
  Sex: Male

DRUGS (1)
  1. SKYRIZI [Suspect]
     Active Substance: RISANKIZUMAB-RZAA
     Indication: Gastrointestinal anastomotic stenosis
     Dosage: FORM STRENGTH: RISANKIZUMAB 600 MG 1 INFUSION
     Route: 042
     Dates: start: 20250904, end: 20251030

REACTIONS (11)
  - Gout [Recovering/Resolving]
  - Pain in extremity [Recovering/Resolving]
  - Diarrhoea haemorrhagic [Recovering/Resolving]
  - Crohn^s disease [Recovering/Resolving]
  - Gastrointestinal erosion [Unknown]
  - Intestinal anastomosis [Unknown]
  - Ulcer [Unknown]
  - Mucosal hyperaemia [Unknown]
  - Angiopathy [Unknown]
  - Gastrointestinal disorder [Unknown]
  - Diverticulitis [Unknown]

NARRATIVE: CASE EVENT DATE: 20250101
